FAERS Safety Report 7901977-X (Version None)
Quarter: 2011Q4

REPORT INFORMATION
  Report Type: 
  Country: None (occurrence: None)
  Receive Date: 20111108
  Receipt Date: 20111028
  Transmission Date: 20120403
  Serious: Yes (Hospitalization)
  Sender: FDA-Public Use
  Company Number: US-GLAXOSMITHKLINE-A0797418A

PATIENT
  Sex: Female

DRUGS (2)
  1. AVANDIA [Suspect]
     Indication: DIABETES MELLITUS
     Route: 048
  2. AVANDAMET [Suspect]
     Indication: DIABETES MELLITUS
     Route: 065

REACTIONS (5)
  - HEART RATE IRREGULAR [None]
  - CHEST PAIN [None]
  - DYSPNOEA [None]
  - CARDIAC DISORDER [None]
  - HEART RATE INCREASED [None]
